FAERS Safety Report 9681138 (Version 1)
Quarter: 2013Q4

REPORT INFORMATION
  Report Type: Spontaneous
  Country: US (occurrence: US)
  Receive Date: 20131111
  Receipt Date: 20131111
  Transmission Date: 20140711
  Serious: Yes (Other)
  Sender: FDA-Public Use
  Company Number: US-ELI_LILLY_AND_COMPANY-US201310010682

PATIENT
  Age: 22 Year
  Sex: Female
  Weight: 63.49 kg

DRUGS (2)
  1. STRATTERA [Suspect]
     Indication: ATTENTION DEFICIT/HYPERACTIVITY DISORDER
     Dosage: 60 MG, QD
     Route: 048
     Dates: start: 201310, end: 201310
  2. WELLBUTRIN [Concomitant]
     Dosage: 150 MG, UNK
     Route: 065

REACTIONS (1)
  - Hypertensive crisis [Unknown]
